FAERS Safety Report 10870223 (Version 2)
Quarter: 2015Q1

REPORT INFORMATION
  Report Type: Spontaneous
  Country: US (occurrence: US)
  Receive Date: 20150226
  Receipt Date: 20150226
  Transmission Date: 20150721
  Serious: Yes (Other)
  Sender: FDA-Public Use
  Company Number: US-SA-2014SA169497

PATIENT
  Sex: Female

DRUGS (17)
  1. GLYBURIDE. [Suspect]
     Active Substance: GLYBURIDE
     Route: 065
  2. ATENOLOL. [Suspect]
     Active Substance: ATENOLOL
     Route: 065
  3. VITAMIN C [Suspect]
     Active Substance: ASCORBIC ACID
     Route: 065
  4. TYLENOL WITH CODEINE [Suspect]
     Active Substance: ACETAMINOPHEN\CODEINE PHOSPHATE
     Route: 065
  5. CALCIUM [Suspect]
     Active Substance: CALCIUM
     Route: 065
  6. TEGRETOL [Suspect]
     Active Substance: CARBAMAZEPINE
     Route: 048
  7. LIPITOR [Suspect]
     Active Substance: ATORVASTATIN CALCIUM
     Route: 065
  8. FLAXSEED [Suspect]
     Active Substance: FLAX SEED
     Route: 065
  9. VITAMIN D [Suspect]
     Active Substance: CHOLECALCIFEROL
     Route: 065
  10. RAMIPRIL. [Suspect]
     Active Substance: RAMIPRIL
     Route: 065
  11. GEMFIBROZIL. [Suspect]
     Active Substance: GEMFIBROZIL
     Route: 065
  12. METFORMIN [Suspect]
     Active Substance: METFORMIN HYDROCHLORIDE
     Route: 065
  13. FLEXERIL [Suspect]
     Active Substance: CYCLOBENZAPRINE HYDROCHLORIDE
     Route: 065
  14. COENZYME Q10 [Suspect]
     Active Substance: UBIDECARENONE
     Route: 065
  15. ZINC [Suspect]
     Active Substance: ZINC\ZINC CHLORIDE
     Route: 065
  16. NIACIN. [Suspect]
     Active Substance: NIACIN
     Route: 065
  17. ASPIRIN. [Suspect]
     Active Substance: ASPIRIN
     Route: 065

REACTIONS (1)
  - Seizure [Unknown]
